FAERS Safety Report 8186991-4 (Version None)
Quarter: 2012Q1

REPORT INFORMATION
  Report Type: 
  Country: None (occurrence: None)
  Receive Date: 20120213
  Receipt Date: 20120109
  Transmission Date: 20120608
  Serious: No
  Sender: FDA-Public Use
  Company Number: 1000026947

PATIENT
  Age: 50 Year
  Sex: Female

DRUGS (5)
  1. SYNTHROID (LEVOTHYROXINE SODIUM) (LEVOTHYROXINE SODIUM) [Concomitant]
  2. IMITREX (SUMATRIPTAN) (SUMATRIPTAN) [Concomitant]
  3. SAVELLA [Suspect]
     Indication: FIBROMYALGIA
     Dosage: 12.5 MG (12.5 MG,1 IN 1 D),ORAL ; 25 MG (12.5 MG,2 IN 1 D),ORAL ; 25 MG (25 MG,1 IN 1 D),ORAL
     Route: 048
     Dates: start: 20120102
  4. SAVELLA [Suspect]
     Indication: FIBROMYALGIA
     Dosage: 12.5 MG (12.5 MG,1 IN 1 D),ORAL ; 25 MG (12.5 MG,2 IN 1 D),ORAL ; 25 MG (25 MG,1 IN 1 D),ORAL
     Route: 048
     Dates: start: 20111227, end: 20111228
  5. SAVELLA [Suspect]
     Indication: FIBROMYALGIA
     Dosage: 12.5 MG (12.5 MG,1 IN 1 D),ORAL ; 25 MG (12.5 MG,2 IN 1 D),ORAL ; 25 MG (25 MG,1 IN 1 D),ORAL
     Route: 048
     Dates: start: 20111229, end: 20120101

REACTIONS (8)
  - MUSCLE TIGHTNESS [None]
  - NAUSEA [None]
  - VOMITING [None]
  - HEADACHE [None]
  - BLOOD PRESSURE INCREASED [None]
  - DIZZINESS [None]
  - HEART RATE INCREASED [None]
  - CONFUSIONAL STATE [None]
